FAERS Safety Report 14190377 (Version 2)
Quarter: 2018Q1

REPORT INFORMATION
  Report Type: Report from Study
  Country: None (occurrence: US)
  Receive Date: 20171115
  Receipt Date: 20180305
  Transmission Date: 20180508
  Serious: No
  Sender: FDA-Public Use
  Company Number: US-ABBVIE-17K-163-2104462-00

PATIENT
  Sex: Female

DRUGS (2)
  1. HUMIRA [Suspect]
     Active Substance: ADALIMUMAB
     Route: 058
     Dates: start: 20170913
  2. HUMIRA [Suspect]
     Active Substance: ADALIMUMAB
     Indication: PSORIATIC ARTHROPATHY
     Route: 058
     Dates: start: 20170611, end: 20170827

REACTIONS (18)
  - Musculoskeletal discomfort [Unknown]
  - Headache [Unknown]
  - Fatigue [Not Recovered/Not Resolved]
  - Stomatitis [Not Recovered/Not Resolved]
  - Blood oestrogen decreased [Unknown]
  - Cyst [Unknown]
  - Nasal congestion [Unknown]
  - Arthralgia [Unknown]
  - Chills [Unknown]
  - Joint range of motion decreased [Unknown]
  - Musculoskeletal stiffness [Not Recovered/Not Resolved]
  - Impaired work ability [Unknown]
  - Hyperhidrosis [Unknown]
  - Anxiety [Unknown]
  - Throat irritation [Unknown]
  - Pain in extremity [Not Recovered/Not Resolved]
  - Allergic respiratory symptom [Unknown]
  - Rash [Unknown]

NARRATIVE: CASE EVENT DATE: 2017
